FAERS Safety Report 8791851 (Version 3)
Quarter: 2012Q4

REPORT INFORMATION
  Report Type: Report from Study
  Country: US (occurrence: US)
  Receive Date: 20120918
  Receipt Date: 20121206
  Transmission Date: 20130627
  Serious: Yes (Hospitalization, Other)
  Sender: FDA-Public Use
  Company Number: US-ABBOTT-12P-163-0979451-00

PATIENT
  Age: 51 None
  Sex: Male
  Weight: 114.41 kg

DRUGS (4)
  1. HUMIRA [Suspect]
     Indication: CROHN^S DISEASE
     Dosage: total of 7 doses
     Dates: start: 20120711, end: 201210
  2. NEXIUM [Concomitant]
     Indication: GASTRITIS
     Route: 048
  3. MULTIVITAMIN [Concomitant]
     Indication: PRODUCT USED FOR UNKNOWN INDICATION
  4. PREDNISONE [Concomitant]
     Indication: PRODUCT USED FOR UNKNOWN INDICATION
     Dosage: Wean

REACTIONS (9)
  - Gastrointestinal stenosis [Recovered/Resolved]
  - Drug hypersensitivity [Unknown]
  - Tongue ulceration [Unknown]
  - Skin fissures [Unknown]
  - Rash pruritic [Recovered/Resolved]
  - Rash [Not Recovered/Not Resolved]
  - Small intestinal obstruction [Recovered/Resolved]
  - Crohn^s disease [Recovered/Resolved]
  - Abdominal adhesions [Recovered/Resolved]
